FAERS Safety Report 7364953-4 (Version None)
Quarter: 2011Q1

REPORT INFORMATION
  Report Type: 
  Country: None (occurrence: None)
  Receive Date: 20110321
  Receipt Date: 20110311
  Transmission Date: 20110831
  Serious: Yes (Death, Hospitalization)
  Sender: FDA-Public Use
  Company Number: FR-TEVA-271280ISR

PATIENT
  Sex: Female

DRUGS (5)
  1. DEXAMETHASONE [Suspect]
     Indication: MULTIPLE MYELOMA
     Dates: start: 20100203
  2. DEXAMETHASONE [Suspect]
     Dates: start: 20110128, end: 20110213
  3. LENALIDOMIDE (CC-5013) [Suspect]
     Indication: MULTIPLE MYELOMA
     Route: 048
     Dates: start: 20100203
  4. LENALIDOMIDE (CC-5013) [Suspect]
     Route: 048
     Dates: start: 20110128, end: 20110213
  5. HEPARIN SODIUM [Concomitant]
     Indication: THROMBOSIS PROPHYLAXIS
     Route: 058

REACTIONS (2)
  - SEPTIC SHOCK [None]
  - PNEUMONIA [None]
